FAERS Safety Report 5299598-3 (Version None)
Quarter: 2007Q2

REPORT INFORMATION
  Report Type: 
  Country: None (occurrence: None)
  Receive Date: 20070417
  Receipt Date: 20070410
  Transmission Date: 20071010
  Serious: Yes (Other)
  Sender: FDA-Public Use
  Company Number: US-ELI_LILLY_AND_COMPANY-US200704001625

PATIENT
  Age: 46 Year
  Sex: Male

DRUGS (2)
  1. XIGRIS [Suspect]
     Indication: SEPTIC SHOCK
     Dosage: UNK, UNK
     Dates: start: 20070408, end: 20070408
  2. PLASMA [Concomitant]
     Dates: start: 20070407, end: 20070407

REACTIONS (2)
  - ACTIVATED PARTIAL THROMBOPLASTIN TIME PROLONGED [None]
  - PLATELET COUNT DECREASED [None]
